FAERS Safety Report 9204421 (Version 2)
Quarter: 2013Q2

REPORT INFORMATION
  Report Type: Report from Study
  Country: FR (occurrence: FR)
  Receive Date: 20130402
  Receipt Date: 20130423
  Transmission Date: 20140414
  Serious: Yes (Death, Hospitalization)
  Sender: FDA-Public Use
  Company Number: FR-PFIZER INC-2013102530

PATIENT
  Age: 67 Year
  Sex: Male
  Weight: 84 kg

DRUGS (11)
  1. SUNITINIB MALATE [Suspect]
     Indication: GASTROINTESTINAL STROMAL TUMOUR
     Dosage: 50 MG PER DAY, 4 WEEKS OUT OF 6
     Dates: start: 20100825, end: 201009
  2. CIFLOX [Concomitant]
     Indication: LUNG DISORDER
     Dosage: UNK
     Dates: start: 2010
  3. LOVENOX [Concomitant]
     Dosage: 80 MG, UNK
     Route: 042
     Dates: start: 20100907
  4. KARDEGIC [Concomitant]
     Dosage: 75 MG, UNK
     Route: 048
     Dates: start: 20100907, end: 20100921
  5. SOLUPRED [Concomitant]
     Dosage: 20 MG, UNK
     Route: 048
     Dates: start: 20100907, end: 20100921
  6. CORTANCYL [Concomitant]
     Dosage: 40 MG, 1X/DAY
     Dates: start: 20100920
  7. DIFFU K [Concomitant]
     Dosage: 2 DF, DAILY
  8. INEXIUM [Concomitant]
     Dosage: 1 DF, DAILY
  9. DUPHALAC [Concomitant]
     Dosage: 3 DF, DAILY
  10. AUGMENTIN [Concomitant]
     Dosage: 3 G, DAILY
     Dates: start: 20101011
  11. ARIXTRA [Concomitant]
     Dosage: 7.5 MG, SINGLE
     Route: 058
     Dates: start: 20101011, end: 20101011

REACTIONS (12)
  - Neurological symptom [Fatal]
  - Coma [Fatal]
  - Polycythaemia [Recovered/Resolved]
  - Confusional state [Unknown]
  - Agitation [Unknown]
  - Somnolence [Unknown]
  - Dehydration [Recovered/Resolved]
  - Encephalopathy [Recovered/Resolved]
  - Somnolence [Recovered/Resolved]
  - Confusional state [Recovered/Resolved]
  - Deep vein thrombosis [Not Recovered/Not Resolved]
  - Pulmonary embolism [Not Recovered/Not Resolved]
